FAERS Safety Report 10337361 (Version 1)
Quarter: 2014Q3

REPORT INFORMATION
  Report Type: Spontaneous
  Country: IT (occurrence: IT)
  Receive Date: 20140723
  Receipt Date: 20140723
  Transmission Date: 20150326
  Serious: Yes (Hospitalization)
  Sender: FDA-Public Use
  Company Number: IT-ROCHE-1439685

PATIENT
  Sex: Male

DRUGS (2)
  1. MABTHERA [Suspect]
     Active Substance: RITUXIMAB
     Indication: VASCULITIS
  2. MABTHERA [Suspect]
     Active Substance: RITUXIMAB
     Indication: GRANULOMA
     Dosage: LAST INFUSION WAS IN  APRIL
     Route: 065

REACTIONS (1)
  - Jaundice [Unknown]
